FAERS Safety Report 23054481 (Version 3)
Quarter: 2023Q4

REPORT INFORMATION
  Report Type: Spontaneous
  Country: US (occurrence: US)
  Receive Date: 20231011
  Receipt Date: 20231129
  Transmission Date: 20240109
  Serious: No
  Sender: FDA-Public Use
  Company Number: US-PFIZER INC-202300316095

PATIENT
  Age: 84 Year
  Sex: Female
  Weight: 61.224 kg

DRUGS (2)
  1. PAXLOVID [Suspect]
     Active Substance: NIRMATRELVIR\RITONAVIR
     Indication: COVID-19 treatment
     Dosage: [PF-07321332 150 MG]/[RITONAVIR 100 MG]; 2X/DAY
     Dates: start: 20230926, end: 20230930
  2. JARDIANCE [Concomitant]
     Active Substance: EMPAGLIFLOZIN
     Dosage: UNK

REACTIONS (7)
  - Therapeutic product effect incomplete [Unknown]
  - Head discomfort [Unknown]
  - Nasopharyngitis [Unknown]
  - Aphonia [Unknown]
  - Cough [Unknown]
  - Oropharyngeal pain [Unknown]
  - Illness [Unknown]
